FAERS Safety Report 5443560-4 (Version None)
Quarter: 2007Q3

REPORT INFORMATION
  Report Type: 
  Country: None (occurrence: None)
  Receive Date: 20070905
  Receipt Date: 20070828
  Transmission Date: 20080115
  Serious: Yes (Death)
  Sender: FDA-Public Use
  Company Number: HQWYE896529AUG07

PATIENT
  Age: 58 Year
  Sex: Male

DRUGS (2)
  1. TYGACIL [Suspect]
     Indication: CELLULITIS
     Dosage: 100MG LOADING DOSE, THEN 50MG EVERY 12 HOURS
     Route: 042
  2. TYGACIL [Suspect]
     Indication: SEPSIS

REACTIONS (1)
  - CARDIAC ARREST [None]
